FAERS Safety Report 16848882 (Version 1)
Quarter: 2019Q3

REPORT INFORMATION
  Report Type: Spontaneous
  Country: DE (occurrence: DE)
  Receive Date: 20190925
  Receipt Date: 20190925
  Transmission Date: 20191005
  Serious: Yes (Other)
  Sender: FDA-Public Use
  Company Number: DE-DEXPHARM-20190820

PATIENT
  Age: 78 Year
  Sex: Male

DRUGS (8)
  1. LEVETIRACETAM PUREN 250 MG FILMTABLETTEN [Suspect]
     Active Substance: LEVETIRACETAM
     Dosage: 1-0-1
  2. LERCANIDIPIN-OMNIAPHARM 10 MG FILMTABLETTEN [Suspect]
     Active Substance: LERCANIDIPINE
     Dosage: 1-0-0
  3. CLOPIDOGREL HEUMANN 75 MG FILMTABLETTEN (INN:CLOPIDOGREL) [Suspect]
     Active Substance: CLOPIDOGREL BISULFATE
     Dosage: 0-0-1
  4. XARELTO [Suspect]
     Active Substance: RIVAROXABAN
     Dosage: 1-0-0
  5. MULTAQ [Suspect]
     Active Substance: DRONEDARONE
     Dosage: 1-0-1
  6. SIMVA-ARISTO 80 MG FILMTABLETTEN [Suspect]
     Active Substance: SIMVASTATIN
     Dosage: 0-0-1
  7. LEVETIRACETAM PUREN 250 MG FILMTABLETTEN [Suspect]
     Active Substance: LEVETIRACETAM
     Dosage: FROM THE 4TH DAY OF INTAKE: 2-0-2
  8. PROPRA-RATIOPHARM 80 MG FILMTABLETTEN [Suspect]
     Active Substance: PROPRANOLOL HYDROCHLORIDE
     Dosage: 0.5-0-0.5

REACTIONS (25)
  - Joint swelling [Not Recovered/Not Resolved]
  - Haematoma [Not Recovered/Not Resolved]
  - Lethargy [Not Recovered/Not Resolved]
  - Pruritus [Not Recovered/Not Resolved]
  - Erythema [Not Recovered/Not Resolved]
  - Asthenia [Not Recovered/Not Resolved]
  - Contusion [Not Recovered/Not Resolved]
  - Cardiac failure [Not Recovered/Not Resolved]
  - Epistaxis [Not Recovered/Not Resolved]
  - Rash [Not Recovered/Not Resolved]
  - Peripheral swelling [Not Recovered/Not Resolved]
  - Tremor [Not Recovered/Not Resolved]
  - Eczema [Not Recovered/Not Resolved]
  - Gingival bleeding [Not Recovered/Not Resolved]
  - Urticaria [Not Recovered/Not Resolved]
  - Dermatitis allergic [Not Recovered/Not Resolved]
  - Petechiae [Not Recovered/Not Resolved]
  - Fatigue [Not Recovered/Not Resolved]
  - Wound haemorrhage [Not Recovered/Not Resolved]
  - Catheter site haematoma [Not Recovered/Not Resolved]
  - Drug interaction [Unknown]
  - Skin burning sensation [Not Recovered/Not Resolved]
  - Dizziness [Not Recovered/Not Resolved]
  - Headache [Not Recovered/Not Resolved]
  - Skin swelling [Not Recovered/Not Resolved]

NARRATIVE: CASE EVENT DATE: 201903
